FAERS Safety Report 24299917 (Version 4)
Quarter: 2024Q4

REPORT INFORMATION
  Report Type: Spontaneous
  Country: KR (occurrence: KR)
  Receive Date: 20240909
  Receipt Date: 20241108
  Transmission Date: 20250115
  Serious: No
  Sender: PFIZER
  Company Number: KR-PFIZER INC-202400252111

PATIENT

DRUGS (1)
  1. ZITHROMAX [Suspect]
     Active Substance: AZITHROMYCIN DIHYDRATE
     Dosage: UNK

REACTIONS (1)
  - Product contamination physical [Unknown]
